FAERS Safety Report 22048271 (Version 1)
Quarter: 2023Q1

REPORT INFORMATION
  Report Type: Spontaneous
  Country: FR (occurrence: FR)
  Receive Date: 20230301
  Receipt Date: 20230301
  Transmission Date: 20230418
  Serious: Yes (Other)
  Sender: FDA-Public Use
  Company Number: FR-002147023-NVSC2023FR044044

PATIENT

DRUGS (1)
  1. LUCENTIS [Suspect]
     Active Substance: RANIBIZUMAB
     Indication: Age-related macular degeneration
     Dosage: UNK, QMO (IN THE RIGHT EYE)
     Route: 050
     Dates: start: 2022

REACTIONS (3)
  - Age-related macular degeneration [Unknown]
  - Disease progression [Unknown]
  - Drug ineffective [Unknown]
